FAERS Safety Report 18793385 (Version 1)
Quarter: 2021Q1

REPORT INFORMATION
  Report Type: Spontaneous
  Country: US (occurrence: US)
  Receive Date: 20210126
  Receipt Date: 20210126
  Transmission Date: 20210419
  Serious: Yes (Hospitalization)
  Sender: FDA-Public Use
  Company Number: None

PATIENT
  Age: 63 Year
  Sex: Female

DRUGS (5)
  1. METOPROL TAR [Concomitant]
  2. LETROZOLE. [Concomitant]
     Active Substance: LETROZOLE
  3. METHYLPRED [Concomitant]
     Active Substance: METHYLPREDNISOLONE
  4. EXEMESTANE. [Concomitant]
     Active Substance: EXEMESTANE
  5. AFINITOR [Suspect]
     Active Substance: EVEROLIMUS
     Indication: BREAST CANCER FEMALE
     Route: 048
     Dates: start: 20201011

REACTIONS (1)
  - Pneumonia [None]

NARRATIVE: CASE EVENT DATE: 20201229
